FAERS Safety Report 5019066-3 (Version None)
Quarter: 2006Q2

REPORT INFORMATION
  Report Type: 
  Country: None (occurrence: None)
  Receive Date: 20060606
  Receipt Date: 20060602
  Transmission Date: 20061013
  Serious: Yes (Death)
  Sender: FDA-Public Use
  Company Number: ES-JNJFOC-20060600745

PATIENT
  Age: 65 Year
  Sex: Male

DRUGS (3)
  1. LEVOFLOXACIN [Suspect]
     Indication: DRUG USE FOR UNKNOWN INDICATION
     Route: 048
  2. CORTICOIDS [Concomitant]
     Route: 048
  3. OXYGEN [Concomitant]

REACTIONS (4)
  - FALL [None]
  - PNEUMOTHORAX [None]
  - RIB FRACTURE [None]
  - TENDON RUPTURE [None]
